FAERS Safety Report 5598297-8 (Version None)
Quarter: 2008Q1

REPORT INFORMATION
  Report Type: 
  Country: None (occurrence: None)
  Receive Date: 20080116
  Receipt Date: 20080104
  Transmission Date: 20080703
  Serious: Yes (Death, Hospitalization)
  Sender: FDA-Public Use
  Company Number: 2007-04322

PATIENT
  Age: 53 Year
  Sex: Female

DRUGS (5)
  1. VELCADE [Suspect]
     Indication: MULTIPLE MYELOMA
     Dates: start: 20071005, end: 20071113
  2. TANESPIMYCIN(KOS-953) [Suspect]
     Indication: MULTIPLE MYELOMA
  3. DOXIL [Concomitant]
  4. DECADRON [Concomitant]
  5. THALIDOMIDE [Concomitant]

REACTIONS (6)
  - ATRIAL FLUTTER [None]
  - CARDIAC AMYLOIDOSIS [None]
  - CARDIAC FAILURE CONGESTIVE [None]
  - CARDIAC TAMPONADE [None]
  - DISEASE PROGRESSION [None]
  - RENAL FAILURE ACUTE [None]
